FAERS Safety Report 13178095 (Version 2)
Quarter: 2017Q2

REPORT INFORMATION
  Report Type: Spontaneous
  Country: CA (occurrence: CA)
  Receive Date: 20170202
  Receipt Date: 20170606
  Transmission Date: 20170830
  Serious: Yes (Other)
  Sender: FDA-Public Use
  Company Number: CA-SUN PHARMACEUTICAL INDUSTRIES LTD-2017US-132649

PATIENT
  Sex: Female

DRUGS (3)
  1. PHENYLEPHRINE [Suspect]
     Active Substance: PHENYLEPHRINE\PHENYLEPHRINE HYDROCHLORIDE
     Indication: MYDRIASIS
     Dosage: 1% EYE DROPS
     Route: 047
  2. CAFFEINE. [Suspect]
     Active Substance: CAFFEINE
     Indication: INFANTILE APNOEA
     Dosage: UNK
     Route: 065
  3. CYCLOPENTOLATE. [Suspect]
     Active Substance: CYCLOPENTOLATE
     Indication: MYDRIASIS
     Dosage: 0.2 % EYE DROPS
     Route: 047

REACTIONS (1)
  - Arrhythmia supraventricular [Recovering/Resolving]
